FAERS Safety Report 25853165 (Version 1)
Quarter: 2025Q3

REPORT INFORMATION
  Report Type: Spontaneous
  Country: EU (occurrence: EU)
  Receive Date: 20250926
  Receipt Date: 20250926
  Transmission Date: 20251021
  Serious: Yes (Life-Threatening)
  Sender: MERCK SHARP & DOHME LLC
  Company Number: None

PATIENT
  Age: 71 Year
  Sex: Male

DRUGS (2)
  1. KEYTRUDA [Suspect]
     Active Substance: PEMBROLIZUMAB
     Indication: Bladder cancer
     Dosage: EVERY THIRD WEEK
     Route: 042
     Dates: start: 20250702
  2. PADCEV [Suspect]
     Active Substance: ENFORTUMAB VEDOTIN-EJFV
     Indication: Bladder cancer
     Route: 042
     Dates: start: 20250702

REACTIONS (2)
  - Pulmonary embolism [Recovering/Resolving]
  - Right ventricular failure [Recovering/Resolving]

NARRATIVE: CASE EVENT DATE: 20250804
